FAERS Safety Report 9504719 (Version 1)
Quarter: 2013Q3

REPORT INFORMATION
  Report Type: Spontaneous
  Country: BR (occurrence: BR)
  Receive Date: 20130906
  Receipt Date: 20130906
  Transmission Date: 20140515
  Serious: Yes (Hospitalization, Disabling)
  Sender: FDA-Public Use
  Company Number: BR-ASTRAZENECA-2013SE66728

PATIENT
  Age: 56 Year
  Sex: Female

DRUGS (3)
  1. SYMBICORT TURBUHALER [Suspect]
     Indication: BRONCHIECTASIS
     Dosage: 320/9 MCG, BID
     Route: 055
     Dates: start: 2005
  2. SPIRIVA [Concomitant]
     Indication: BRONCHIECTASIS
  3. AZITHROMYCIN [Concomitant]
     Indication: BRONCHIECTASIS

REACTIONS (1)
  - Bronchiectasis [Not Recovered/Not Resolved]
